FAERS Safety Report 10448319 (Version 1)
Quarter: 2014Q3

REPORT INFORMATION
  Report Type: Spontaneous
  Country: JP (occurrence: JP)
  Receive Date: 20140911
  Receipt Date: 20140911
  Transmission Date: 20150326
  Serious: Yes (Hospitalization)
  Sender: FDA-Public Use
  Company Number: PHHY2014JP111565

PATIENT
  Age: 30 Year
  Sex: Male

DRUGS (1)
  1. ACETYLSALICYLIC ACID [Suspect]
     Active Substance: ASPIRIN
     Dosage: 100 MG, DAILY

REACTIONS (6)
  - Carotid artery stenosis [Recovering/Resolving]
  - Carotid artery dissection [Unknown]
  - Hypoaesthesia [Unknown]
  - Vision blurred [Unknown]
  - Aortic intramural haematoma [Unknown]
  - False lumen dilatation of aortic dissection [Unknown]
